FAERS Safety Report 4444742-0 (Version None)
Quarter: 2004Q3

REPORT INFORMATION
  Report Type: 
  Country: None (occurrence: None)
  Receive Date: 20040903
  Receipt Date: 20040819
  Transmission Date: 20050211
  Serious: Yes (Hospitalization)
  Sender: FDA-Public Use
  Company Number: 04P-087-0271278-00

PATIENT
  Sex: Male

DRUGS (2)
  1. KALETRA [Suspect]
     Indication: HIV INFECTION
     Dosage: PER ORAL
     Route: 048
  2. ZIDOVUDINE W/LAMIVUDINE [Suspect]
     Indication: HIV INFECTION
     Dosage: PER ORAL
     Route: 048

REACTIONS (1)
  - LIVER DISORDER [None]
